FAERS Safety Report 4667209-3 (Version None)
Quarter: 2005Q2

REPORT INFORMATION
  Report Type: 
  Country: None (occurrence: None)
  Receive Date: 20050520
  Receipt Date: 20040723
  Transmission Date: 20051028
  Serious: No
  Sender: FDA-Public Use
  Company Number: US-BRISTOL-MYERS SQUIBB COMPANY-12650644

PATIENT
  Age: 86 Year
  Sex: Female
  Weight: 49 kg

DRUGS (3)
  1. CARBIDOPA + LEVODOPA [Suspect]
     Indication: PARKINSON'S DISEASE
     Route: 048
     Dates: start: 19840101
  2. PROCARDIA XL [Concomitant]
     Route: 048
     Dates: start: 19840101
  3. ZOLOFT [Concomitant]
     Route: 048
     Dates: start: 20030801

REACTIONS (1)
  - FEELING ABNORMAL [None]
